FAERS Safety Report 5093701-6 (Version None)
Quarter: 2006Q3

REPORT INFORMATION
  Report Type: 
  Country: None (occurrence: None)
  Receive Date: 20060831
  Receipt Date: 20060825
  Transmission Date: 20061208
  Serious: Yes (Other)
  Sender: FDA-Public Use
  Company Number: PHEH2006US10940

PATIENT
  Age: 68 Year
  Sex: Male
  Weight: 68.027 kg

DRUGS (3)
  1. AREDIA [Suspect]
     Dates: start: 20030101
  2. AVASTIN [Concomitant]
     Dosage: 700MG Q3WKS
     Route: 042
  3. ANTIHYPERTENSIVE DRUGS [Concomitant]

REACTIONS (8)
  - GINGIVAL BLEEDING [None]
  - GINGIVITIS [None]
  - LOOSE TOOTH [None]
  - ORAL INFECTION [None]
  - ORAL INTAKE REDUCED [None]
  - OSTEONECROSIS [None]
  - PAIN IN JAW [None]
  - TRISMUS [None]
